FAERS Safety Report 7391829-9 (Version None)
Quarter: 2011Q2

REPORT INFORMATION
  Report Type: 
  Country: None (occurrence: None)
  Receive Date: 20110404
  Receipt Date: 20110330
  Transmission Date: 20111010
  Serious: Yes (Death, Congenital Anomaly, Other)
  Sender: FDA-Public Use
  Company Number: US-PFIZER INC-2005070832

PATIENT
  Sex: Male
  Weight: 90.72 kg

DRUGS (6)
  1. BEXTRA [Suspect]
     Indication: ARTHRITIS
     Route: 048
     Dates: end: 20050401
  2. ALLEGRA [Concomitant]
     Route: 065
  3. IBUPROFEN [Suspect]
     Indication: ARTHRITIS
     Dosage: UNKN OWN
     Route: 048
     Dates: start: 20010101
  4. NORVASC [Suspect]
     Indication: HYPERTENSION
     Route: 048
  5. ARTHROTEC [Suspect]
     Indication: ARTHRITIS
     Route: 048
     Dates: start: 20010101
  6. ADVIL LIQUI-GELS [Suspect]
     Indication: ARTHRITIS

REACTIONS (10)
  - MYOCARDIAL INFARCTION [None]
  - HYPERSENSITIVITY [None]
  - CORONARY ARTERY OCCLUSION [None]
  - HYPONATRAEMIA [None]
  - CONGENITAL ANOMALY [None]
  - IRRITABLE BOWEL SYNDROME [None]
  - CORONARY ARTERY DISEASE [None]
  - WHEEZING [None]
  - ARTHRITIS [None]
  - NERVOUSNESS [None]
